FAERS Safety Report 22249982 (Version 1)
Quarter: 2023Q2

REPORT INFORMATION
  Report Type: Report from Study
  Country: US (occurrence: US)
  Receive Date: 20230425
  Receipt Date: 20230425
  Transmission Date: 20230721
  Serious: Yes (Hospitalization, Other)
  Sender: FDA-Public Use
  Company Number: US-ABBVIE-4736491

PATIENT
  Age: 63 Year
  Sex: Male

DRUGS (2)
  1. HUMIRA [Suspect]
     Active Substance: ADALIMUMAB
     Indication: Psoriatic arthropathy
     Route: 058
     Dates: start: 2003
  2. HUMIRA [Suspect]
     Active Substance: ADALIMUMAB
     Route: 058
     Dates: start: 20221107

REACTIONS (7)
  - Cardiac ablation [Unknown]
  - Diabetes mellitus [Unknown]
  - Spinal operation [Unknown]
  - Atrial fibrillation [Unknown]
  - Hypertension [Unknown]
  - Nephrolithiasis [Unknown]
  - Asthma [Unknown]

NARRATIVE: CASE EVENT DATE: 20220401
